FAERS Safety Report 4965701-5 (Version None)
Quarter: 2006Q2

REPORT INFORMATION
  Report Type: 
  Country: None (occurrence: None)
  Receive Date: 20060405
  Receipt Date: 20060405
  Transmission Date: 20061013
  Serious: Yes (Other)
  Sender: FDA-Public Use
  Company Number: None

PATIENT
  Age: 65 Year
  Sex: Female
  Weight: 68 kg

DRUGS (4)
  1. ALBUMIN 51. 250 ML [Suspect]
     Dosage: 250 ML
     Dates: start: 20050316
  2. CEREBYX [Concomitant]
  3. PROTONIX [Concomitant]
  4. NAFCILLIN [Concomitant]

REACTIONS (1)
  - RASH GENERALISED [None]
